FAERS Safety Report 23333303 (Version 1)
Quarter: 2023Q4

REPORT INFORMATION
  Report Type: Spontaneous
  Country: US (occurrence: US)
  Receive Date: 20231222
  Receipt Date: 20231222
  Transmission Date: 20240110
  Serious: No
  Sender: FDA-Public Use
  Company Number: US-CTI BIOPHARMA-2023US04151

PATIENT

DRUGS (12)
  1. VONJO [Suspect]
     Active Substance: PACRITINIB
     Indication: Breast cancer
     Dosage: 200 MG, BID
     Route: 048
     Dates: start: 20230630
  2. ALPRAZOLAM [Concomitant]
     Active Substance: ALPRAZOLAM
  3. PROCHLORPERAZINE [Concomitant]
     Active Substance: PROCHLORPERAZINE
  4. ESOMEPRAZOLE [Concomitant]
     Active Substance: ESOMEPRAZOLE
  5. TOPIRAMATE [Concomitant]
     Active Substance: TOPIRAMATE
  6. GABAPENTIN [Concomitant]
     Active Substance: GABAPENTIN
  7. LETROZOLE [Concomitant]
     Active Substance: LETROZOLE
  8. VITAMIN D3 [Concomitant]
     Active Substance: CHOLECALCIFEROL
  9. EFFEXOR [Concomitant]
     Active Substance: VENLAFAXINE HYDROCHLORIDE
  10. CALCIUM CARBONATE [Concomitant]
     Active Substance: CALCIUM CARBONATE
  11. ERYTHROPOIETIN [Concomitant]
     Active Substance: ERYTHROPOIETIN
  12. SAXENDA [Concomitant]
     Active Substance: LIRAGLUTIDE

REACTIONS (3)
  - Nervousness [Not Recovered/Not Resolved]
  - Off label use [Unknown]
  - Feeling jittery [Not Recovered/Not Resolved]
